FAERS Safety Report 11021143 (Version 2)
Quarter: 2015Q3

REPORT INFORMATION
  Report Type: Spontaneous
  Country: IT (occurrence: IT)
  Receive Date: 20150413
  Receipt Date: 20150701
  Transmission Date: 20151125
  Serious: Yes (Hospitalization)
  Sender: FDA-Public Use
  Company Number: IT-MALLINCKRODT-T201501988

PATIENT
  Age: 85 Year
  Sex: Female

DRUGS (1)
  1. EXALGO [Suspect]
     Active Substance: HYDROMORPHONE HYDROCHLORIDE
     Indication: PRODUCT USED FOR UNKNOWN INDICATION
     Dosage: UNK
     Route: 048
     Dates: start: 20141005, end: 20141007

REACTIONS (1)
  - Sopor [Recovering/Resolving]

NARRATIVE: CASE EVENT DATE: 20141006
